FAERS Safety Report 21885655 (Version 6)
Quarter: 2023Q1

REPORT INFORMATION
  Report Type: Spontaneous
  Country: US (occurrence: US)
  Receive Date: 20230119
  Receipt Date: 20230213
  Transmission Date: 20230418
  Serious: No
  Sender: FDA-Public Use
  Company Number: US-PFIZER INC-PV202300007336

PATIENT
  Age: 80 Year
  Sex: Female
  Weight: 72.57 kg

DRUGS (2)
  1. IBRANCE [Suspect]
     Active Substance: PALBOCICLIB
     Indication: Breast cancer female
     Dosage: 125 MG, CYCLIC (1 TABLET A DAY FOR 21 DAYS AND THEN OFF FOR ONE WEEK)
  2. LETROZOLE [Concomitant]
     Active Substance: LETROZOLE
     Dosage: 2.5 MG (TAKING FOR 1.5- 2 WEEKS BEFORE STARTING IBRANCE)

REACTIONS (2)
  - Therapeutic response unexpected [Unknown]
  - Peripheral swelling [Unknown]
